FAERS Safety Report 21106106 (Version 3)
Quarter: 2022Q3

REPORT INFORMATION
  Report Type: Spontaneous
  Country: US (occurrence: US)
  Receive Date: 20220720
  Receipt Date: 20220929
  Transmission Date: 20221027
  Serious: No
  Sender: FDA-Public Use
  Company Number: US-PFIZER INC-202200966386

PATIENT
  Age: 52 Year
  Sex: Male
  Weight: 98.413 kg

DRUGS (1)
  1. PAXLOVID [Suspect]
     Active Substance: NIRMATRELVIR\RITONAVIR
     Indication: COVID-19 treatment
     Dosage: [PF-07321332 300 MG]/[RITONAVIR 100 MG]; 2X/DAY
     Route: 048
     Dates: start: 20220705, end: 20220710

REACTIONS (1)
  - Dysgeusia [Recovered/Resolved]

NARRATIVE: CASE EVENT DATE: 20220705
